FAERS Safety Report 11168458 (Version 1)
Quarter: 2015Q2

REPORT INFORMATION
  Report Type: Spontaneous
  Country: US (occurrence: US)
  Receive Date: 20150605
  Receipt Date: 20150605
  Transmission Date: 20150821
  Serious: Yes (Disabling)
  Sender: FDA-Public Use
  Company Number: US-GLAXOSMITHKLINE-US2015GSK076281

PATIENT
  Sex: Female
  Weight: 64 kg

DRUGS (12)
  1. SIMVASTATIN. [Concomitant]
     Active Substance: SIMVASTATIN
  2. VESICARE [Concomitant]
     Active Substance: SOLIFENACIN SUCCINATE
  3. LAMICTAL [Suspect]
     Active Substance: LAMOTRIGINE
     Indication: PRODUCT USED FOR UNKNOWN INDICATION
     Dosage: UNK, U
     Dates: start: 201502, end: 201502
  4. CLONAZEPAM. [Concomitant]
     Active Substance: CLONAZEPAM
  5. DIAZEPAM. [Concomitant]
     Active Substance: DIAZEPAM
  6. AMPYRA [Suspect]
     Active Substance: DALFAMPRIDINE
     Indication: MULTIPLE SCLEROSIS
     Dosage: 10 MG, BID
     Route: 048
     Dates: start: 201502, end: 201502
  7. MORPHINE SULFATE. [Concomitant]
     Active Substance: MORPHINE SULFATE
  8. CELEXA [Suspect]
     Active Substance: CITALOPRAM HYDROBROMIDE
     Indication: PRODUCT USED FOR UNKNOWN INDICATION
     Dosage: UNK, U
     Dates: start: 201502, end: 201502
  9. PHENERGAN [Concomitant]
     Active Substance: PROMETHAZINE HYDROCHLORIDE
  10. BACLOFEN. [Concomitant]
     Active Substance: BACLOFEN
  11. GILENYA [Concomitant]
     Active Substance: FINGOLIMOD HYDROCHLORIDE
  12. BENADRYL [Concomitant]
     Active Substance: DIPHENHYDRAMINE HYDROCHLORIDE

REACTIONS (4)
  - Mobility decreased [Unknown]
  - Butterfly rash [Recovered/Resolved]
  - Rash generalised [Recovered/Resolved]
  - Pruritus [Recovered/Resolved]

NARRATIVE: CASE EVENT DATE: 2015
